FAERS Safety Report 15593976 (Version 3)
Quarter: 2019Q2

REPORT INFORMATION
  Report Type: Spontaneous
  Country: US (occurrence: US)
  Receive Date: 20181106
  Receipt Date: 20190513
  Transmission Date: 20190711
  Serious: No
  Sender: FDA-Public Use
  Company Number: US-PFIZER INC-2018450987

PATIENT
  Age: 68 Year
  Sex: Male

DRUGS (2)
  1. GABAPENTIN. [Suspect]
     Active Substance: GABAPENTIN
     Indication: RADICULOPATHY
     Dosage: 300 MG, 1X/DAY FOR 7 DAYS, THEN BID
     Route: 048
     Dates: start: 20161020
  2. GABAPENTIN. [Suspect]
     Active Substance: GABAPENTIN
     Dosage: 300 MG, 1X/DAY FOR 7 DAYS, THEN BID
     Route: 048
     Dates: end: 20161102

REACTIONS (2)
  - Drug hypersensitivity [Unknown]
  - Hallucination [Unknown]
